FAERS Safety Report 19361381 (Version 2)
Quarter: 2021Q2

REPORT INFORMATION
  Report Type: Spontaneous
  Country: IT (occurrence: IT)
  Receive Date: 20210601
  Receipt Date: 20210617
  Transmission Date: 20210717
  Serious: Yes (Other)
  Sender: FDA-Public Use
  Company Number: IT-PFIZER INC-2021629777

PATIENT
  Age: 43 Year
  Sex: Female

DRUGS (2)
  1. OXALIPLATIN. [Suspect]
     Active Substance: OXALIPLATIN
     Indication: GASTRIC NEOPLASM
     Dosage: UNK
     Dates: start: 201902, end: 201908
  2. CAPECITABINE. [Suspect]
     Active Substance: CAPECITABINE

REACTIONS (2)
  - Neuropathy peripheral [Unknown]
  - Neutropenia [Unknown]

NARRATIVE: CASE EVENT DATE: 2019
